FAERS Safety Report 9336748 (Version 1)
Quarter: 2013Q2

REPORT INFORMATION
  Report Type: Report from Study
  Country: US (occurrence: US)
  Receive Date: 20130607
  Receipt Date: 20130607
  Transmission Date: 20140414
  Serious: Yes (Other)
  Sender: FDA-Public Use
  Company Number: PHEH2013US007943

PATIENT
  Sex: Female

DRUGS (2)
  1. AFINITOR [Suspect]
     Indication: PANCREATIC NEUROENDOCRINE TUMOUR
     Dosage: 10 MG, QD
     Route: 048
     Dates: start: 201204
  2. AFINITOR [Suspect]

REACTIONS (4)
  - Cardiac disorder [Unknown]
  - Pulmonary oedema [Unknown]
  - Local swelling [Unknown]
  - Swelling [Unknown]
